FAERS Safety Report 5628572-X (Version None)
Quarter: 2008Q1

REPORT INFORMATION
  Report Type: 
  Country: None (occurrence: None)
  Receive Date: 20080215
  Receipt Date: 20080205
  Transmission Date: 20080703
  Serious: Yes (Other)
  Sender: FDA-Public Use
  Company Number: ES-PFIZER INC-2008011652

PATIENT
  Age: 49 Year
  Sex: Male

DRUGS (6)
  1. CHANTIX [Suspect]
     Indication: EX-SMOKER
     Route: 048
     Dates: start: 20071201, end: 20080101
  2. ADIRO [Concomitant]
     Indication: SMOKING CESSATION THERAPY
  3. ATENOLOL [Concomitant]
  4. PRAVASTATIN [Concomitant]
  5. LEXATIN [Concomitant]
  6. ISCOVER [Concomitant]

REACTIONS (1)
  - HEPATITIS TOXIC [None]
